FAERS Safety Report 10272856 (Version 1)
Quarter: 2014Q2

REPORT INFORMATION
  Report Type: Spontaneous
  Country: US (occurrence: None)
  Receive Date: 20140630
  Receipt Date: 20140630
  Transmission Date: 20141212
  Serious: No
  Sender: FDA-Public Use
  Company Number: None

PATIENT
  Age: 28 Year
  Sex: 0

DRUGS (1)
  1. ADDERALL [Suspect]
     Dosage: 1 TABLET TWICE DAILY TAKEN BY MOUTH
     Route: 048
     Dates: start: 20140627, end: 20140628

REACTIONS (4)
  - Drug ineffective [None]
  - Product substitution issue [None]
  - Product quality issue [None]
  - Product physical issue [None]
